FAERS Safety Report 8487879-1 (Version None)
Quarter: 2012Q2

REPORT INFORMATION
  Report Type: 
  Country: None (occurrence: None)
  Receive Date: 20120402
  Receipt Date: 20100621
  Transmission Date: 20120825
  Serious: Yes (Other)
  Sender: FDA-Public Use
  Company Number: PHHY2010US40466

PATIENT
  Age: 80 Year
  Sex: Female

DRUGS (7)
  1. TWYNSTA [Suspect]
  2. LOTREL [Suspect]
  3. IBUPROFEN (ADVIL) [Concomitant]
  4. EXFORGE [Suspect]
     Dosage: 160/10 MG
  5. NEXIUM (ESOMEPRAZOLE MANGESIUM) [Suspect]
     Indication: ABDOMINAL PAIN UPPER
  6. PREMARIN [Concomitant]
  7. PLAVIX [Concomitant]

REACTIONS (9)
  - HYPERTENSION [None]
  - ABDOMINAL PAIN UPPER [None]
  - FEELING ABNORMAL [None]
  - PALPITATIONS [None]
  - VISION BLURRED [None]
  - SWOLLEN TONGUE [None]
  - PHARYNGEAL OEDEMA [None]
  - DIZZINESS [None]
  - BLOOD PRESSURE ABNORMAL [None]
